FAERS Safety Report 8934262 (Version 3)
Quarter: 2013Q2

REPORT INFORMATION
  Report Type: Spontaneous
  Country: JP (occurrence: JP)
  Receive Date: 20121129
  Receipt Date: 20130422
  Transmission Date: 20140414
  Serious: Yes (Other)
  Sender: FDA-Public Use
  Company Number: JP-009507513-1211JPN009357

PATIENT
  Age: 77 Year
  Sex: Female

DRUGS (1)
  1. FOSAMAC TABLETS-5 [Suspect]
     Indication: OSTEOPOROSIS
     Dosage: DAILY DOSE UNKNOWN
     Route: 048

REACTIONS (3)
  - Oesophageal carcinoma [Unknown]
  - Oesophageal ulcer [Unknown]
  - Gastrointestinal endoscopic therapy [Unknown]
